FAERS Safety Report 4994444-7 (Version None)
Quarter: 2006Q1

REPORT INFORMATION
  Report Type: 
  Country: None (occurrence: None)
  Receive Date: 20060313
  Receipt Date: 20051121
  Transmission Date: 20060701
  Serious: No
  Sender: FDA-Public Use
  Company Number: 2005-BP-20469BP

PATIENT
  Sex: Female

DRUGS (3)
  1. SPIRIVA [Suspect]
     Indication: ASTHMA
     Dosage: 18 MCG (18 MCG, IN THE MORNING), IH
     Route: 055
     Dates: start: 20051104
  2. FLEXERIL [Concomitant]
  3. NEXIUM [Concomitant]

REACTIONS (2)
  - DYSPEPSIA [None]
  - OESOPHAGEAL DISORDER [None]
